FAERS Safety Report 9851247 (Version 1)
Quarter: 2014Q1

REPORT INFORMATION
  Report Type: Spontaneous
  Country: US (occurrence: US)
  Receive Date: 20140128
  Receipt Date: 20140128
  Transmission Date: 20141002
  Serious: No
  Sender: FDA-Public Use
  Company Number: US-ROXANE LABORATORIES, INC.-2014-RO-00099RO

PATIENT
  Sex: 0

DRUGS (1)
  1. PREDNISONE [Suspect]
     Dates: start: 20131217

REACTIONS (2)
  - Blood pressure increased [Recovered/Resolved]
  - Gastrooesophageal reflux disease [Unknown]
